FAERS Safety Report 20601548 (Version 1)
Quarter: 2022Q1

REPORT INFORMATION
  Report Type: Spontaneous
  Country: US (occurrence: US)
  Receive Date: 20220316
  Receipt Date: 20220316
  Transmission Date: 20220423
  Serious: No
  Sender: FDA-Public Use
  Company Number: US-NKFPHARMA-2022MPSPO00015

PATIENT
  Age: 53 Year
  Sex: Female
  Weight: 182 kg

DRUGS (2)
  1. ENOXAPARIN SODIUM [Suspect]
     Active Substance: ENOXAPARIN SODIUM
     Indication: Hysterectomy
     Route: 065
  2. DEVICE [Suspect]
     Active Substance: DEVICE
     Indication: Hysterectomy

REACTIONS (3)
  - No adverse event [Unknown]
  - Device physical property issue [Unknown]
  - Product leakage [Unknown]

NARRATIVE: CASE EVENT DATE: 20220128
